FAERS Safety Report 7553431-5 (Version None)
Quarter: 2011Q2

REPORT INFORMATION
  Report Type: 
  Country: None (occurrence: None)
  Receive Date: 20110614
  Receipt Date: 20110614
  Transmission Date: 20111010
  Serious: Yes (Other)
  Sender: FDA-Public Use
  Company Number: None

PATIENT
  Age: 61 Year
  Sex: Male
  Weight: 73.0291 kg

DRUGS (1)
  1. CHANTIX [Suspect]
     Indication: SMOKING CESSATION THERAPY
     Dosage: 1MG 2 PO
     Route: 048
     Dates: start: 20110416, end: 20110603

REACTIONS (5)
  - AGGRESSION [None]
  - ABNORMAL SLEEP-RELATED EVENT [None]
  - PERSONALITY CHANGE [None]
  - NIGHTMARE [None]
  - ABNORMAL BEHAVIOUR [None]
